FAERS Safety Report 6861350-2 (Version None)
Quarter: 2010Q3

REPORT INFORMATION
  Report Type: 
  Country: None (occurrence: None)
  Receive Date: 20100715
  Receipt Date: 20100701
  Transmission Date: 20110219
  Serious: Yes (Hospitalization)
  Sender: FDA-Public Use
  Company Number: 2010AP001358

PATIENT
  Age: 39 Year
  Sex: Male

DRUGS (8)
  1. MYCOPHENOLATE MOFETIL [Suspect]
     Indication: POSTOPERATIVE CARE
     Dosage: 1000 ?G; BID PO
     Route: 048
     Dates: start: 20081212
  2. MYCOPHENOLATE MOFETIL [Suspect]
     Indication: RENAL TRANSPLANT
     Dosage: 1000 ?G; BID PO
     Route: 048
     Dates: start: 20081212
  3. TACROLIMUS [Suspect]
     Indication: POSTOPERATIVE CARE
     Dosage: 4 MG; BID PO
     Route: 048
     Dates: start: 20081212
  4. TACROLIMUS [Suspect]
     Indication: RENAL TRANSPLANT
     Dosage: 4 MG; BID PO
     Route: 048
     Dates: start: 20081212
  5. BISOPROLOL FUMARATE [Concomitant]
  6. MYCOPHENOLIC ACID [Concomitant]
  7. PREDNISOLONE [Concomitant]
  8. VALPROATE SODIUM [Concomitant]

REACTIONS (2)
  - DIABETES MELLITUS [None]
  - VISION BLURRED [None]
